FAERS Safety Report 7381361-0 (Version None)
Quarter: 2011Q1

REPORT INFORMATION
  Report Type: 
  Country: None (occurrence: None)
  Receive Date: 20110323
  Receipt Date: 20110323
  Transmission Date: 20110831
  Serious: Yes (Hospitalization)
  Sender: FDA-Public Use
  Company Number: None

PATIENT
  Sex: Male
  Weight: 80 kg

DRUGS (1)
  1. ALFA 2 INTERFERON 2B (INTERON-A) [Suspect]
     Dosage: 768 MILLION IU(ARM B: HIGH DOSE INTERFERON ALAFA 2B, 20 MILLION IU/ M2, 1 COURSE = 5X/WK FOR 4 WEEKS

REACTIONS (2)
  - CORONARY ARTERY DISEASE [None]
  - EJECTION FRACTION DECREASED [None]
